FAERS Safety Report 4910097-8 (Version None)
Quarter: 2006Q1

REPORT INFORMATION
  Report Type: 
  Country: None (occurrence: None)
  Receive Date: 20060209
  Receipt Date: 20060127
  Transmission Date: 20060701
  Serious: Yes (Hospitalization)
  Sender: FDA-Public Use
  Company Number: 2006PV007719

PATIENT
  Age: 59 Year
  Sex: Female

DRUGS (2)
  1. BYETTA [Suspect]
     Indication: DIABETES MELLITUS NON-INSULIN-DEPENDENT
     Dosage: SC
     Route: 058
     Dates: start: 20051201, end: 20060101
  2. GLUCOPHAGE [Concomitant]

REACTIONS (4)
  - BLOOD PRESSURE DECREASED [None]
  - DEHYDRATION [None]
  - RENAL FAILURE [None]
  - WEIGHT DECREASED [None]
